FAERS Safety Report 14801176 (Version 2)
Quarter: 2019Q2

REPORT INFORMATION
  Report Type: Spontaneous
  Country: FI (occurrence: FI)
  Receive Date: 20180424
  Receipt Date: 20190510
  Transmission Date: 20190711
  Serious: Yes (Hospitalization, Disabling)
  Sender: FDA-Public Use
  Company Number: FI-MYLANLABS-2018M1024972

PATIENT
  Sex: Female

DRUGS (3)
  1. QUETIAPINE. [Suspect]
     Active Substance: QUETIAPINE
     Indication: BIPOLAR DISORDER
     Dosage: UNK
     Route: 065
  2. QUETIAPINE. [Suspect]
     Active Substance: QUETIAPINE
     Dosage: UNK
     Route: 048
     Dates: start: 2015, end: 2015
  3. QUETIAPINE. [Suspect]
     Active Substance: QUETIAPINE
     Dosage: UNK
     Route: 048
     Dates: start: 2016

REACTIONS (7)
  - Psychological trauma [Unknown]
  - Feeling abnormal [Unknown]
  - Mental disorder [Unknown]
  - Depression [Unknown]
  - Loss of personal independence in daily activities [Unknown]
  - Fall [Unknown]
  - Anxiety [Unknown]
